FAERS Safety Report 14470174 (Version 3)
Quarter: 2019Q1

REPORT INFORMATION
  Report Type: Report from Study
  Country: US (occurrence: US)
  Receive Date: 20180131
  Receipt Date: 20190108
  Transmission Date: 20190417
  Serious: Yes (Other)
  Sender: FDA-Public Use
  Company Number: US-UCBSA-2018002689

PATIENT
  Age: 28 Year
  Sex: Female
  Weight: 113 kg

DRUGS (2)
  1. CERTOLIZUMAB PEGOL [Suspect]
     Active Substance: CERTOLIZUMAB PEGOL
     Indication: RHEUMATOID ARTHRITIS
     Dosage: 200 MG, EV 2 WEEKS(QOW)
     Route: 058
     Dates: start: 201806
  2. CERTOLIZUMAB PEGOL [Suspect]
     Active Substance: CERTOLIZUMAB PEGOL
     Indication: PSORIATIC ARTHROPATHY
     Dosage: 400 MG, EV 2 WEEKS(QOW)
     Dates: start: 20171127, end: 20171127

REACTIONS (6)
  - Ear infection [Recovered/Resolved]
  - Lymphadenopathy [Not Recovered/Not Resolved]
  - Pyrexia [Recovered/Resolved]
  - Sinusitis [Recovered/Resolved]
  - Malaise [Recovered/Resolved]
  - Atypical pneumonia [Recovered/Resolved]

NARRATIVE: CASE EVENT DATE: 20171129
